FAERS Safety Report 20563673 (Version 4)
Quarter: 2022Q3

REPORT INFORMATION
  Report Type: Spontaneous
  Country: SE (occurrence: SE)
  Receive Date: 20220308
  Receipt Date: 20220830
  Transmission Date: 20221027
  Serious: Yes (Death, Hospitalization)
  Sender: FDA-Public Use
  Company Number: SE-TEVA-2022-SE-2009637

PATIENT
  Age: 62 Year
  Sex: Male
  Weight: 125.7 kg

DRUGS (8)
  1. SIMVASTATIN [Suspect]
     Active Substance: SIMVASTATIN
     Indication: Product used for unknown indication
     Dosage: UNK
     Route: 048
  2. ENALAPRIL MALEATE [Suspect]
     Active Substance: ENALAPRIL MALEATE
     Indication: Product used for unknown indication
     Dosage: UNK
     Route: 048
     Dates: start: 201206
  3. RITUXIMAB [Suspect]
     Active Substance: RITUXIMAB
     Indication: Follicular lymphoma
     Dosage: SINGLE, FREQUENCY TIME : CYCLICAL
     Dates: start: 20211123, end: 20211123
  4. METFORMIN HYDROCHLORIDE [Suspect]
     Active Substance: METFORMIN HYDROCHLORIDE
     Indication: Product used for unknown indication
     Dosage: UNK
     Route: 048
  5. LENALIDOMIDE [Suspect]
     Active Substance: LENALIDOMIDE
     Indication: B-cell lymphoma
     Dosage: UNK
     Route: 065
     Dates: start: 20211123
  6. ACIKLOVIR [Concomitant]
     Indication: Product used for unknown indication
     Dosage: UNK
     Route: 065
     Dates: start: 20211123
  7. SITAGLIPTIN [Concomitant]
     Active Substance: SITAGLIPTIN
     Indication: Product used for unknown indication
     Dosage: UNK
     Route: 065
     Dates: start: 202106
  8. EPCORITAMAB [Concomitant]
     Active Substance: EPCORITAMAB
     Indication: Follicular lymphoma
     Dosage: PRIMING DOSE, BRAND NAME: DUOBODY-CD3XCD20
     Route: 058
     Dates: start: 20211123, end: 20211123

REACTIONS (7)
  - Cytokine release syndrome [Recovered/Resolved]
  - Diarrhoea [Recovered/Resolved]
  - Pneumocystis jirovecii infection [Recovered/Resolved with Sequelae]
  - Dehydration [Recovered/Resolved]
  - Colitis [Unknown]
  - Abdominal pain [Unknown]
  - Disease progression [Fatal]

NARRATIVE: CASE EVENT DATE: 20220111
